FAERS Safety Report 6962310-3 (Version None)
Quarter: 2010Q3

REPORT INFORMATION
  Report Type: 
  Country: None (occurrence: None)
  Receive Date: 20100902
  Receipt Date: 20100822
  Transmission Date: 20110219
  Serious: No
  Sender: FDA-Public Use
  Company Number: US-ELI_LILLY_AND_COMPANY-US201005002930

PATIENT
  Age: 6 Year
  Sex: Male
  Weight: 20.408 kg

DRUGS (10)
  1. STRATTERA [Suspect]
     Indication: ATTENTION DEFICIT/HYPERACTIVITY DISORDER
     Dosage: 10 MG, UNK
     Dates: start: 20080610, end: 20080714
  2. STRATTERA [Suspect]
     Dosage: 18 MG, UNK
     Dates: start: 20080715, end: 20100202
  3. METHYLPHENIDATE - SLOW RELEASE [Concomitant]
     Dosage: 10 MG, DAILY (1/D)
     Dates: start: 20080715, end: 20100602
  4. METHYLPHENIDATE - SLOW RELEASE [Concomitant]
     Dosage: 36 MG, DAILY (1/D)
     Dates: start: 20080715, end: 20100602
  5. IMIPRAMINE HYDROCHLORIDE [Concomitant]
     Dosage: 25 MG, DAILY (1/D)
     Dates: start: 20080610, end: 20100602
  6. IMIPRAMINE HYDROCHLORIDE [Concomitant]
     Dosage: 50 MG, DAILY (1/D)
     Dates: start: 20080610, end: 20100602
  7. ARIPIPRAZOLE [Concomitant]
     Dosage: 2.5 MG, DAILY (1/D)
     Dates: start: 20090922, end: 20100602
  8. ARIPIPRAZOLE [Concomitant]
     Dosage: 7 MG, DAILY (1/D)
     Dates: start: 20090922, end: 20100602
  9. CLONIDINE [Concomitant]
     Dosage: 0.05 MG, DAILY (1/D)
     Dates: start: 20100202, end: 20100423
  10. CLONIDINE [Concomitant]
     Dosage: 0.1 MG, DAILY (1/D)
     Dates: start: 20100202, end: 20100423

REACTIONS (1)
  - WHITE BLOOD CELL COUNT DECREASED [None]
